FAERS Safety Report 5588967-X (Version None)
Quarter: 2007Q4

REPORT INFORMATION
  Report Type: 
  Country: None (occurrence: None)
  Receive Date: 20071212
  Receipt Date: 20070420
  Transmission Date: 20080405
  Serious: Yes (Other)
  Sender: FDA-Public Use
  Company Number: USA-2007-0027171

PATIENT
  Age: 29 Year
  Sex: Female

DRUGS (3)
  1. OXYCODONE HYDROCHLORIDE (SIMILAR TO NDA 20-553) (OXYCODONE HYDROCHLORI [Suspect]
     Indication: RADICULITIS
     Dosage: SEE TEXT, ORAL
     Route: 048
     Dates: start: 20070410, end: 20070401
  2. PAMELOR [Suspect]
     Indication: PAIN
  3. VICODIN [Concomitant]

REACTIONS (3)
  - DIZZINESS [None]
  - DRUG EFFECT DECREASED [None]
  - VISUAL DISTURBANCE [None]
